FAERS Safety Report 6064727-0 (Version None)
Quarter: 2009Q1

REPORT INFORMATION
  Report Type: 
  Country: None (occurrence: None)
  Receive Date: 20090204
  Receipt Date: 20080821
  Transmission Date: 20090719
  Serious: Yes (Other)
  Sender: FDA-Public Use
  Company Number: A0743746A

PATIENT
  Sex: Male

DRUGS (2)
  1. ARIXTRA [Suspect]
     Dosage: 2.5MG UNKNOWN
     Route: 058
     Dates: start: 20080801, end: 20080801
  2. EPIDURAL [Concomitant]
     Route: 008

REACTIONS (1)
  - HEPATIC ENZYME INCREASED [None]
